FAERS Safety Report 25170766 (Version 1)
Quarter: 2025Q2

REPORT INFORMATION
  Report Type: Spontaneous
  Country: GB (occurrence: GB)
  Receive Date: 20250408
  Receipt Date: 20250408
  Transmission Date: 20250716
  Serious: Yes (Hospitalization, Other)
  Sender: AUROBINDO
  Company Number: GB-PHARMVIT-4556-3352-ER25-RN1393

PATIENT
  Age: 43 Year
  Sex: Female

DRUGS (1)
  1. PREDNISOLONE [Suspect]
     Active Substance: PREDNISOLONE
     Indication: Adverse drug reaction
     Route: 065

REACTIONS (3)
  - Immunosuppression [Unknown]
  - Toxoplasmosis [Unknown]
  - Drug interaction [Unknown]
